FAERS Safety Report 25981498 (Version 1)
Quarter: 2025Q4

REPORT INFORMATION
  Report Type: Spontaneous
  Country: RU (occurrence: RU)
  Receive Date: 20251030
  Receipt Date: 20251030
  Transmission Date: 20260118
  Serious: Yes (Other)
  Sender: ALEXION PHARMACEUTICALS
  Company Number: RU-ASTRAZENECA-202510EAF027388RU

PATIENT
  Sex: Female
  Weight: 54 kg

DRUGS (9)
  1. DAPAGLIFLOZIN [Suspect]
     Active Substance: DAPAGLIFLOZIN
     Dosage: UNK
     Route: 065
     Dates: start: 20241017, end: 20241024
  2. SPIRONOLACTONE [Suspect]
     Active Substance: SPIRONOLACTONE
     Dosage: UNK
     Route: 065
     Dates: start: 20241017, end: 20241101
  3. FUROSEMIDE [Suspect]
     Active Substance: FUROSEMIDE
     Dosage: UNK
     Route: 065
     Dates: start: 20241008, end: 20241014
  4. TORSEMIDE [Suspect]
     Active Substance: TORSEMIDE
     Dosage: UNK
     Route: 065
     Dates: start: 20241017, end: 20241021
  5. DEXAMETHASONE [Concomitant]
     Active Substance: DEXAMETHASONE
  6. NADROPARIN CALCIUM [Concomitant]
     Active Substance: NADROPARIN CALCIUM
  7. ELIQUIS [Concomitant]
     Active Substance: APIXABAN
  8. PERINDOPRIL [Concomitant]
     Active Substance: PERINDOPRIL
  9. CEFTRIAXONE [Concomitant]
     Active Substance: CEFTRIAXONE

REACTIONS (10)
  - Hyperglycaemic hyperosmolar nonketotic syndrome [Recovered/Resolved]
  - Blood urea abnormal [Unknown]
  - Drug interaction [Not Recovered/Not Resolved]
  - Hypovolaemia [Recovered/Resolved]
  - Polycythaemia [Unknown]
  - Haemoglobin increased [Unknown]
  - Haematocrit increased [Unknown]
  - Glomerular filtration rate decreased [Unknown]
  - C-reactive protein increased [Recovering/Resolving]
  - Abdominal tenderness [Unknown]
